FAERS Safety Report 5465001-3 (Version None)
Quarter: 2007Q3

REPORT INFORMATION
  Report Type: 
  Country: None (occurrence: None)
  Receive Date: 20070820
  Receipt Date: 20070705
  Transmission Date: 20080115
  Serious: No
  Sender: FDA-Public Use
  Company Number: TAP2007A01445

PATIENT
  Age: 60 Year
  Sex: Male

DRUGS (1)
  1. ROZEREM (RAMELEON) (8 MILLIGRAM, TABLETS) [Suspect]
     Dosage: 8 MG, PER ORAL
     Route: 048

REACTIONS (1)
  - NIGHTMARE [None]
